FAERS Safety Report 7677229-2 (Version None)
Quarter: 2011Q3

REPORT INFORMATION
  Report Type: 
  Country: None (occurrence: None)
  Receive Date: 20110810
  Receipt Date: 20110810
  Transmission Date: 20111222
  Serious: Yes (Other)
  Sender: FDA-Public Use
  Company Number: None

PATIENT
  Sex: Female
  Weight: 72.5755 kg

DRUGS (1)
  1. E-Z-EM PREP LYTE [Suspect]
     Indication: DYSPEPSIA
     Dosage: ~60CC X1 PO THICK BARIUM; ~60CC X1 PO THIN BARIUM
     Route: 048
     Dates: start: 20100217

REACTIONS (1)
  - ABDOMINAL PAIN [None]
